FAERS Safety Report 7732142-7 (Version None)
Quarter: 2011Q3

REPORT INFORMATION
  Report Type: 
  Country: None (occurrence: None)
  Receive Date: 20110906
  Receipt Date: 20110901
  Transmission Date: 20111222
  Serious: Yes (Hospitalization)
  Sender: FDA-Public Use
  Company Number: FR-GILEAD-2011-0038324

PATIENT
  Sex: Male

DRUGS (4)
  1. VIREAD [Suspect]
     Indication: HEPATITIS B
     Route: 048
     Dates: start: 20110120
  2. CELLCEPT [Suspect]
     Indication: LIVER TRANSPLANT
     Route: 048
     Dates: start: 20110120
  3. PROGRAF [Suspect]
     Indication: LIVER TRANSPLANT
  4. PREDNISONE [Suspect]
     Indication: LIVER TRANSPLANT
     Route: 048
     Dates: start: 20110123

REACTIONS (1)
  - PERSECUTORY DELUSION [None]
